FAERS Safety Report 7112223-1 (Version None)
Quarter: 2010Q4

REPORT INFORMATION
  Report Type: 
  Country: None (occurrence: None)
  Receive Date: 20101119
  Receipt Date: 20100318
  Transmission Date: 20110411
  Serious: No
  Sender: FDA-Public Use
  Company Number: A0851485A

PATIENT
  Age: 67 Year
  Sex: Male

DRUGS (4)
  1. AVODART [Suspect]
     Indication: PROSTATE CANCER
     Dosage: 1CAP PER DAY
     Route: 048
     Dates: start: 20080101
  2. CELEBREX [Suspect]
     Route: 065
  3. FLOMAX [Concomitant]
  4. PREVACID [Concomitant]

REACTIONS (2)
  - DRUG INTERACTION [None]
  - THERAPEUTIC RESPONSE UNEXPECTED [None]
